FAERS Safety Report 10072038 (Version 1)
Quarter: 2014Q2

REPORT INFORMATION
  Report Type: Spontaneous
  Country: US (occurrence: None)
  Receive Date: 20140410
  Receipt Date: 20140410
  Transmission Date: 20141212
  Serious: Yes (Other)
  Sender: FDA-Public Use
  Company Number: None

PATIENT
  Age: 79 Year
  Sex: Female
  Weight: 61.24 kg

DRUGS (7)
  1. FLAGYL [Suspect]
     Indication: DIVERTICULITIS
     Route: 048
     Dates: start: 20140416, end: 20140420
  2. METOPROLOL SR [Concomitant]
  3. DOCUSATE [Concomitant]
  4. LIDOCAINE [Concomitant]
  5. PHENERGAN [Concomitant]
  6. METRONIDAZOLE [Suspect]
     Dates: start: 20140416, end: 20140420
  7. LEVOFLOXACIN [Suspect]

REACTIONS (4)
  - Joint stiffness [None]
  - Musculoskeletal stiffness [None]
  - Myalgia [None]
  - Tendonitis [None]
